FAERS Safety Report 19847363 (Version 1)
Quarter: 2021Q3

REPORT INFORMATION
  Report Type: Spontaneous
  Country: DE (occurrence: DE)
  Receive Date: 20210917
  Receipt Date: 20210917
  Transmission Date: 20211014
  Serious: Yes (Hospitalization)
  Sender: FDA-Public Use
  Company Number: DE-TEVA-2021-DE-1952470

PATIENT
  Age: 53 Year
  Sex: Female
  Weight: 86.2 kg

DRUGS (3)
  1. AMISULPRID [Concomitant]
     Active Substance: AMISULPRIDE
     Dosage: 400 MILLIGRAM DAILY; 1?0?0?0
     Route: 048
  2. CLOZAPIN [Suspect]
     Active Substance: CLOZAPINE
     Dosage: 100 MG, 1?1?0?3
     Route: 048
  3. CLOZAPIN [Suspect]
     Active Substance: CLOZAPINE
     Dosage: 2 DOSAGE FORMS DAILY; 25 MG, 0?0?0?2
     Route: 048

REACTIONS (6)
  - Fatigue [Unknown]
  - General physical health deterioration [Unknown]
  - Depressed mood [Unknown]
  - Insomnia [Unknown]
  - Dizziness [Unknown]
  - Nausea [Unknown]
